FAERS Safety Report 10047713 (Version 2)
Quarter: 2014Q1

REPORT INFORMATION
  Report Type: Spontaneous
  Country: AU (occurrence: AU)
  Receive Date: 20140331
  Receipt Date: 20140331
  Transmission Date: 20141002
  Serious: Yes (Hospitalization)
  Sender: FDA-Public Use
  Company Number: AU-FRI-1000058740

PATIENT
  Age: 50 Year
  Sex: Female

DRUGS (1)
  1. SAPHRIS [Suspect]
     Indication: BIPOLAR I DISORDER
     Dosage: 10 MG, ONCE
     Route: 060
     Dates: start: 20131115, end: 201311

REACTIONS (6)
  - Anaphylactic reaction [Recovering/Resolving]
  - Hyporesponsive to stimuli [Recovered/Resolved]
  - Speech disorder [Recovered/Resolved]
  - Agitation [Recovering/Resolving]
  - Sedation [Recovered/Resolved]
  - Akathisia [Unknown]
